FAERS Safety Report 21469605 (Version 1)
Quarter: 2022Q4

REPORT INFORMATION
  Report Type: Spontaneous
  Country: US (occurrence: US)
  Receive Date: 20221018
  Receipt Date: 20221018
  Transmission Date: 20230113
  Serious: No
  Sender: FDA-Public Use
  Company Number: US-ADAMAS PHARMA, LLC-2022ADA00804

PATIENT
  Sex: Female
  Weight: 40.816 kg

DRUGS (19)
  1. GOCOVRI [Suspect]
     Active Substance: AMANTADINE
     Indication: Parkinson^s disease
     Dosage: 205.5 MG, 1X/DAY (137 MG + 68.5 MG)
     Route: 048
     Dates: start: 20180509, end: 202109
  2. GOCOVRI [Suspect]
     Active Substance: AMANTADINE
     Indication: Dyskinesia
     Dosage: 137 MG, 1X/DAY AT BEDTIME
     Route: 048
     Dates: start: 202109
  3. GOCOVRI [Suspect]
     Active Substance: AMANTADINE
     Indication: Parkinson^s disease
     Dosage: 205.5 MG, 1X/DAY (68.5 MG + 137 MG)
     Route: 048
     Dates: start: 20180509, end: 202109
  4. GOCOVRI [Suspect]
     Active Substance: AMANTADINE
     Indication: Dyskinesia
  5. RYTARY [Suspect]
     Active Substance: CARBIDOPA\LEVODOPA
     Indication: Parkinson^s disease
     Dosage: 195 MG, 7X/DAY
  6. METHOTREXATE [Concomitant]
     Active Substance: METHOTREXATE
     Dosage: 10 MG, 1X/WEEK (MONDAY MORNING)
  7. SIMVASTATIN [Concomitant]
     Active Substance: SIMVASTATIN
     Dosage: 20 MG, 1X/DAY
  8. PRAMIPEXOLE [Concomitant]
     Active Substance: PRAMIPEXOLE
     Dosage: 2.5 MG, 3X/DAY
  9. PRAMIPEXOLE [Concomitant]
     Active Substance: PRAMIPEXOLE
     Dosage: 1 MG, 1X/DAY
  10. SERTRALINE [Concomitant]
     Active Substance: SERTRALINE HYDROCHLORIDE
     Dosage: 75 MG, 1X/DAY IN THE MORNING
  11. CARBIDOPA\LEVODOPA [Concomitant]
     Active Substance: CARBIDOPA\LEVODOPA
     Dosage: UNK, 7X/DAY
  12. ELIQUIS [Concomitant]
     Active Substance: APIXABAN
     Dosage: 1 TABLETS, 2X/DAY
  13. FOLIC ACID [Concomitant]
     Active Substance: FOLIC ACID
     Dosage: 1 MG, 1X/DAY
  14. QUETIAPINE [Concomitant]
     Active Substance: QUETIAPINE
     Dosage: 100 MG, 1X/DAY AT BEDTIME
  15. QUETIAPINE [Concomitant]
     Active Substance: QUETIAPINE
     Dosage: 50 MG, 1X/DAY AT 5 PM
  16. MELATONIN [Concomitant]
     Active Substance: MELATONIN
     Dosage: 6 MG
  17. COLACE [Concomitant]
     Active Substance: DOCUSATE SODIUM
     Dosage: 200 MG, 1X/DAY AT BEDTIME
  18. MIRALAX [Concomitant]
     Active Substance: POLYETHYLENE GLYCOL 3350
     Dosage: 1 DOSAGE UNITS, 1X/DAY IN THE MORNING
  19. COLCHICINE [Concomitant]
     Active Substance: COLCHICINE

REACTIONS (7)
  - Abnormal faeces [Not Recovered/Not Resolved]
  - Product residue present [Not Recovered/Not Resolved]
  - Diarrhoea [Not Recovered/Not Resolved]
  - Tremor [Not Recovered/Not Resolved]
  - Malabsorption [Not Recovered/Not Resolved]
  - Constipation [Unknown]
  - Underdose [Not Recovered/Not Resolved]

NARRATIVE: CASE EVENT DATE: 20200101
